FAERS Safety Report 10440533 (Version 1)
Quarter: 2014Q3

REPORT INFORMATION
  Report Type: Spontaneous
  Country: US (occurrence: None)
  Receive Date: 20140908
  Receipt Date: 20140908
  Transmission Date: 20150326
  Serious: Yes (Disabling)
  Sender: FDA-Public Use
  Company Number: None

PATIENT
  Age: 58 Year
  Sex: Female
  Weight: 60.78 kg

DRUGS (1)
  1. BUPROPION [Suspect]
     Active Substance: BUPROPION
     Indication: DEPRESSION
     Route: 048
     Dates: start: 20140818, end: 20140903

REACTIONS (6)
  - Chest discomfort [None]
  - Product substitution issue [None]
  - Heart rate increased [None]
  - Anxiety [None]
  - Product quality issue [None]
  - Tinnitus [None]

NARRATIVE: CASE EVENT DATE: 20140830
